FAERS Safety Report 15754938 (Version 1)
Quarter: 2018Q4

REPORT INFORMATION
  Report Type: Spontaneous
  Country: FR (occurrence: FR)
  Receive Date: 20181224
  Receipt Date: 20181224
  Transmission Date: 20190205
  Serious: Yes (Life-Threatening)
  Sender: FDA-Public Use
  Company Number: FR-ROCHE-2232909

PATIENT
  Age: 67 Year
  Sex: Female
  Weight: 61 kg

DRUGS (10)
  1. ROCEPHINE [Suspect]
     Active Substance: CEFTRIAXONE SODIUM
     Indication: APLASIA
     Dosage: DATE OF MOST RECENT DOSE : 18/OCT/2018
     Route: 042
     Dates: start: 20181012
  2. FORTUM [Suspect]
     Active Substance: CEFTAZIDIME
     Indication: BONE MARROW FAILURE
     Route: 042
     Dates: start: 20181016, end: 201811
  3. DOXORUBICINE [Suspect]
     Active Substance: DOXORUBICIN
     Indication: LYMPHOMA
     Dosage: DATE OF MOST RECENT DOSE: 28/JUL/2016
     Route: 041
     Dates: start: 20100212
  4. AMIKLIN [Suspect]
     Active Substance: AMIKACIN SULFATE
     Indication: BONE MARROW FAILURE
     Dosage: DATE OF MOST RECENT DOSE : 17/OCT/2018
     Route: 042
     Dates: start: 20181012
  5. ENDOXAN [Suspect]
     Active Substance: CYCLOPHOSPHAMIDE
     Indication: STEM CELL TRANSPLANT
     Dosage: DATE OF MOST RECENT DOSE: 16/OCT/2018
     Route: 042
     Dates: start: 20181005
  6. VANCOMYCINE [Suspect]
     Active Substance: VANCOMYCIN
     Indication: BONE MARROW FAILURE
     Dosage: DATE OF MOST RECENT DOSE: 16/OCT/2018
     Route: 042
     Dates: start: 20181015
  7. FLUDARABINE PHOSPHATE. [Suspect]
     Active Substance: FLUDARABINE PHOSPHATE
     Indication: STEM CELL TRANSPLANT
     Dosage: DATE OF MOST RECENT DOSE : 09/OCT/2018
     Route: 042
     Dates: start: 20181005
  8. RITUXIMAB. [Suspect]
     Active Substance: RITUXIMAB
     Indication: STEM CELL TRANSPLANT
     Dosage: DATE OF MOST RECENT DOSE : 18/OCT/2018
     Route: 042
     Dates: start: 20181002
  9. CELLCEPT [Suspect]
     Active Substance: MYCOPHENOLATE MOFETIL\MYCOPHENOLATE MOFETIL HYDROCHLORIDE
     Indication: PROPHYLAXIS AGAINST GRAFT VERSUS HOST DISEASE
     Route: 042
     Dates: start: 20181016
  10. CICLOSPORINE [Suspect]
     Active Substance: CYCLOSPORINE
     Indication: PROPHYLAXIS AGAINST GRAFT VERSUS HOST DISEASE
     Route: 042
     Dates: start: 20181016

REACTIONS (2)
  - Cardiac failure [Not Recovered/Not Resolved]
  - Cardiomyopathy [Not Recovered/Not Resolved]

NARRATIVE: CASE EVENT DATE: 201810
